FAERS Safety Report 5133044-5 (Version None)
Quarter: 2006Q4

REPORT INFORMATION
  Report Type: 
  Country: None (occurrence: None)
  Receive Date: 20061017
  Receipt Date: 20061004
  Transmission Date: 20070319
  Serious: Yes (Hospitalization, Other)
  Sender: FDA-Public Use
  Company Number: 2006-08-0552

PATIENT
  Age: 46 Year
  Sex: Male

DRUGS (5)
  1. TEMODAL [Suspect]
     Indication: ANAPLASTIC ASTROCYTOMA
     Dosage: 400 MG; UNKNOWN; PO
     Route: 048
     Dates: start: 20050601, end: 20060809
  2. DEXAMETHASONE TAB [Concomitant]
  3. ESOMEPRAZOLE MAGNESIUM [Concomitant]
  4. ALLOPURINOL [Concomitant]
  5. LEVOTHYROXINE SODIUM [Concomitant]

REACTIONS (2)
  - AMAUROSIS [None]
  - VISUAL ACUITY REDUCED [None]
